FAERS Safety Report 5977619-X (Version None)
Quarter: 2008Q4

REPORT INFORMATION
  Report Type: 
  Country: None (occurrence: None)
  Receive Date: 20081201
  Receipt Date: 20081201
  Transmission Date: 20090506
  Serious: Yes (Hospitalization)
  Sender: FDA-Public Use
  Company Number: None

PATIENT
  Sex: Male
  Weight: 70.7611 kg

DRUGS (5)
  1. AVASTIN [Suspect]
     Indication: NON-SMALL CELL LUNG CANCER
     Dosage: 10MG/KG
     Dates: end: 20080912
  2. ALIMTA [Suspect]
     Indication: NON-SMALL CELL LUNG CANCER
     Dosage: 500MG/KG 1, 15 D
     Dates: end: 20080926
  3. GEMZAR [Suspect]
     Indication: NON-SMALL CELL LUNG CANCER
     Dosage: 1500 MG/M2 1, 15 ON DAYS
     Dates: end: 20080926
  4. FOLIC ACID [Concomitant]
  5. VITAMIN B-12 [Concomitant]

REACTIONS (5)
  - EUSTACHIAN TUBE DYSFUNCTION [None]
  - PENILE DISCHARGE [None]
  - PROCTALGIA [None]
  - RECTAL DISCHARGE [None]
  - SCROTAL INFECTION [None]
